FAERS Safety Report 11105334 (Version 2)
Quarter: 2015Q2

REPORT INFORMATION
  Report Type: Spontaneous
  Country: CA (occurrence: CA)
  Receive Date: 20150512
  Receipt Date: 20150611
  Transmission Date: 20150821
  Serious: Yes (Other)
  Sender: FDA-Public Use
  Company Number: CA-ROCHE-1574386

PATIENT
  Age: 76 Year
  Sex: Female

DRUGS (26)
  1. PLAQUENIL [Suspect]
     Active Substance: HYDROXYCHLOROQUINE SULFATE
     Indication: PRODUCT USED FOR UNKNOWN INDICATION
     Route: 065
  2. ENABLEX [Concomitant]
     Active Substance: DARIFENACIN\DARIFENACIN HYDROBROMIDE
  3. METHOTREXATE [Suspect]
     Active Substance: METHOTREXATE
     Indication: PRODUCT USED FOR UNKNOWN INDICATION
     Route: 065
     Dates: start: 1995, end: 200411
  4. XELJANZ [Suspect]
     Active Substance: TOFACITINIB CITRATE
     Indication: PRODUCT USED FOR UNKNOWN INDICATION
     Route: 065
  5. ORENCIA [Suspect]
     Active Substance: ABATACEPT
     Indication: PRODUCT USED FOR UNKNOWN INDICATION
     Route: 065
  6. NORFLEX [Concomitant]
     Active Substance: ORPHENADRINE CITRATE
  7. PANTOLOC [Concomitant]
     Active Substance: PANTOPRAZOLE SODIUM
  8. ABATACEPT [Concomitant]
     Active Substance: ABATACEPT
  9. KINERET [Concomitant]
     Active Substance: ANAKINRA
  10. ENBREL [Suspect]
     Active Substance: ETANERCEPT
     Indication: RHEUMATOID ARTHRITIS
     Route: 065
     Dates: start: 200205, end: 200409
  11. REMICADE [Suspect]
     Active Substance: INFLIXIMAB
     Indication: PRODUCT USED FOR UNKNOWN INDICATION
     Route: 065
     Dates: start: 200407, end: 2005
  12. SYNTHROID [Concomitant]
     Active Substance: LEVOTHYROXINE SODIUM
  13. CORTISONE [Concomitant]
     Active Substance: CORTISONE\HYDROCORTISONE
     Route: 030
  14. LEFLUNOMIDE. [Concomitant]
     Active Substance: LEFLUNOMIDE
  15. RITUXAN [Concomitant]
     Active Substance: RITUXIMAB
  16. OMNARIS [Concomitant]
     Active Substance: CICLESONIDE
  17. VAGIFEM [Concomitant]
     Active Substance: ESTRADIOL
  18. ARAVA [Suspect]
     Active Substance: LEFLUNOMIDE
     Indication: PRODUCT USED FOR UNKNOWN INDICATION
     Route: 065
     Dates: start: 200408
  19. LOPERAMIDE [Concomitant]
     Active Substance: LOPERAMIDE
  20. CORTISONE [Concomitant]
     Active Substance: CORTISONE\HYDROCORTISONE
     Route: 013
  21. ACTEMRA [Suspect]
     Active Substance: TOCILIZUMAB
     Indication: PRODUCT USED FOR UNKNOWN INDICATION
     Route: 065
     Dates: end: 20150203
  22. HUMIRA [Suspect]
     Active Substance: ADALIMUMAB
     Indication: PRODUCT USED FOR UNKNOWN INDICATION
     Route: 065
     Dates: start: 2005, end: 2006
  23. BENADRYL [Concomitant]
     Active Substance: DIPHENHYDRAMINE HYDROCHLORIDE
  24. LASIX [Concomitant]
     Active Substance: FUROSEMIDE
  25. ATIVAN [Concomitant]
     Active Substance: LORAZEPAM
  26. DILAUDID [Concomitant]
     Active Substance: HYDROMORPHONE HYDROCHLORIDE

REACTIONS (15)
  - Blood cholesterol increased [Unknown]
  - Infection [Unknown]
  - Peripheral swelling [Unknown]
  - Herpes zoster [Unknown]
  - Pneumonia viral [Unknown]
  - Joint swelling [Unknown]
  - Fibromyalgia [Unknown]
  - Synovitis [Unknown]
  - Drug effect incomplete [Unknown]
  - Tenderness [Unknown]
  - Leukopenia [Unknown]
  - Arthralgia [Unknown]
  - Arthritis [Unknown]
  - Liver function test abnormal [Unknown]
  - Anaemia [Unknown]
